FAERS Safety Report 9699305 (Version 1)
Quarter: 2013Q4

REPORT INFORMATION
  Report Type: Spontaneous
  Country: US (occurrence: US)
  Receive Date: 20131120
  Receipt Date: 20131120
  Transmission Date: 20140711
  Serious: No
  Sender: FDA-Public Use
  Company Number: US-GILEAD-2008-0015473

PATIENT
  Sex: Female
  Weight: 76.2 kg

DRUGS (10)
  1. LETAIRIS [Suspect]
     Indication: PULMONARY ARTERIAL HYPERTENSION
     Route: 048
     Dates: start: 20071218, end: 20071226
  2. LETAIRIS [Suspect]
     Route: 048
     Dates: start: 20080124
  3. TADALAFIL [Concomitant]
     Route: 048
  4. LASIX [Concomitant]
     Route: 048
  5. LISINOPRIL [Concomitant]
     Route: 048
  6. COUMADIN [Concomitant]
     Route: 048
  7. DIGOXIN [Concomitant]
     Route: 048
  8. SYNTHROID [Concomitant]
     Route: 048
  9. IPOGEN [Concomitant]
     Route: 030
  10. IRON [Concomitant]
     Route: 048

REACTIONS (4)
  - Diarrhoea [Recovered/Resolved]
  - Nausea [Recovered/Resolved]
  - Eye swelling [Recovered/Resolved]
  - Headache [Recovered/Resolved]
